FAERS Safety Report 22123932 (Version 1)
Quarter: 2023Q1

REPORT INFORMATION
  Report Type: Spontaneous
  Country: JO (occurrence: JO)
  Receive Date: 20230322
  Receipt Date: 20230322
  Transmission Date: 20230417
  Serious: Yes (Death, Hospitalization, Other)
  Sender: FDA-Public Use
  Company Number: JO-KYOWAKIRIN-2023AKK004032

PATIENT

DRUGS (3)
  1. FILGRASTIM [Suspect]
     Active Substance: FILGRASTIM
     Indication: T-cell type acute leukaemia
     Dosage: UNK
     Route: 065
  2. PEGFILGRASTIM [Suspect]
     Active Substance: PEGFILGRASTIM
     Indication: T-cell type acute leukaemia
     Dosage: UNK
     Route: 065
  3. ASPARAGINASE [Suspect]
     Active Substance: ASPARAGINASE
     Indication: T-cell type acute leukaemia
     Dosage: UNK
     Route: 065

REACTIONS (7)
  - Hepatic failure [Fatal]
  - Sepsis [Fatal]
  - Febrile neutropenia [Unknown]
  - Thrombocytopenia [Unknown]
  - Fungal infection [Unknown]
  - Anaemia [Unknown]
  - Adverse event [Unknown]
